FAERS Safety Report 5711555-9 (Version None)
Quarter: 2008Q2

REPORT INFORMATION
  Report Type: 
  Country: None (occurrence: None)
  Receive Date: 20080418
  Receipt Date: 20080418
  Transmission Date: 20081010
  Serious: Yes (Hospitalization)
  Sender: FDA-Public Use
  Company Number: None

PATIENT
  Age: 79 Year
  Sex: Male
  Weight: 72.3 kg

DRUGS (2)
  1. COUMADIN [Suspect]
     Indication: PERIPHERAL VASCULAR DISORDER
     Dosage: 2.5 EVERY DAY PO
     Route: 048
     Dates: start: 20080128, end: 20080211
  2. COUMADIN [Suspect]
     Indication: PERIPHERAL VASCULAR DISORDER
     Dosage: 5 EVERY OTHER DAY PO
     Route: 048
     Dates: start: 20080129, end: 20080211

REACTIONS (1)
  - RECTAL HAEMORRHAGE [None]
